FAERS Safety Report 4586721-9 (Version None)
Quarter: 2005Q1

REPORT INFORMATION
  Report Type: 
  Country: None (occurrence: None)
  Receive Date: 20050218
  Receipt Date: 20040830
  Transmission Date: 20050727
  Serious: Yes (Hospitalization, Other)
  Sender: FDA-Public Use
  Company Number: PHNU2004DE03043

PATIENT
  Age: 27 Year
  Sex: Female

DRUGS (3)
  1. BETADORM [Suspect]
     Dosage: 12 DF, ONCE/SINGLE
  2. RISPERDAL [Concomitant]
  3. CLOZAPINE [Suspect]
     Dosage: 500MG/DAY

REACTIONS (2)
  - GRAND MAL CONVULSION [None]
  - OVERDOSE [None]
